FAERS Safety Report 7414811-1 (Version None)
Quarter: 2011Q2

REPORT INFORMATION
  Report Type: 
  Country: None (occurrence: None)
  Receive Date: 20110414
  Receipt Date: 20101119
  Transmission Date: 20111010
  Serious: No
  Sender: FDA-Public Use
  Company Number: A0894256A

PATIENT
  Age: 85 Year
  Sex: Female

DRUGS (7)
  1. LOVASTATIN [Concomitant]
  2. VICODIN [Concomitant]
  3. VITAMIN D [Concomitant]
  4. LUXIQ [Suspect]
     Route: 061
     Dates: start: 20100801, end: 20101001
  5. WARFARIN [Concomitant]
  6. TOPROL-XL [Concomitant]
  7. ZEGERID [Concomitant]

REACTIONS (4)
  - DERMATITIS [None]
  - LOCAL SWELLING [None]
  - ERYTHEMA [None]
  - PRURITUS [None]
